FAERS Safety Report 8299628-0 (Version None)
Quarter: 2012Q2

REPORT INFORMATION
  Report Type: 
  Country: None (occurrence: None)
  Receive Date: 20120419
  Receipt Date: 20120410
  Transmission Date: 20120825
  Serious: Yes (Other)
  Sender: FDA-Public Use
  Company Number: FR-GLAXOSMITHKLINE-B0794305A

PATIENT
  Sex: Female

DRUGS (2)
  1. LEVOTHYROXINE SODIUM [Concomitant]
  2. ZOVIRAX [Suspect]
     Indication: ENCEPHALITIS
     Dosage: 600MG THREE TIMES PER DAY
     Route: 042
     Dates: start: 20120313, end: 20120316

REACTIONS (6)
  - TACHYCARDIA [None]
  - FACE OEDEMA [None]
  - DRUG HYPERSENSITIVITY [None]
  - VERTIGO [None]
  - DYSPNOEA [None]
  - RASH [None]
